FAERS Safety Report 9254404 (Version 3)
Quarter: 2013Q2

REPORT INFORMATION
  Report Type: Spontaneous
  Country: US (occurrence: US)
  Receive Date: 20130425
  Receipt Date: 20130610
  Transmission Date: 20140414
  Serious: Yes (Other)
  Sender: FDA-Public Use
  Company Number: US-SHIONOGI, INC-2013000167

PATIENT
  Sex: 0

DRUGS (2)
  1. NAPRELAN [Suspect]
     Indication: PAIN
     Dosage: 500 MG, UNK
     Route: 065
     Dates: start: 20130403, end: 20130410
  2. NAPRELAN [Suspect]
     Indication: OSTEOARTHRITIS

REACTIONS (6)
  - Dyspnoea [Recovered/Resolved]
  - Hypersensitivity [Recovered/Resolved]
  - Oropharyngeal pain [Recovered/Resolved]
  - Throat irritation [Recovered/Resolved]
  - Urticaria [Recovered/Resolved]
  - Drug ineffective [Recovered/Resolved]
